FAERS Safety Report 25137012 (Version 1)
Quarter: 2025Q1

REPORT INFORMATION
  Report Type: Spontaneous
  Country: US (occurrence: US)
  Receive Date: 20250328
  Receipt Date: 20250328
  Transmission Date: 20250409
  Serious: Yes (Life-Threatening, Hospitalization, Other)
  Sender: ELI LILLY AND COMPANY
  Company Number: US-ELI_LILLY_AND_COMPANY-US202503025069

PATIENT
  Age: 59 Year
  Sex: Female

DRUGS (3)
  1. TIRZEPATIDE [Suspect]
     Active Substance: TIRZEPATIDE
     Indication: Product used for unknown indication
     Route: 065
  2. HYDROCHLOROTHIAZIDE\LISINOPRIL [Concomitant]
     Active Substance: HYDROCHLOROTHIAZIDE\LISINOPRIL
     Indication: Product used for unknown indication
     Route: 065
  3. INSULIN NOS [Concomitant]
     Active Substance: INSULIN NOS
     Indication: Product used for unknown indication
     Route: 065

REACTIONS (7)
  - Torsade de pointes [Unknown]
  - Ventricular fibrillation [Unknown]
  - Tachyarrhythmia [Unknown]
  - Long QT syndrome [Unknown]
  - Blood potassium decreased [Unknown]
  - Blood glucose increased [Unknown]
  - Anion gap increased [Unknown]
